FAERS Safety Report 10150779 (Version 1)
Quarter: 2014Q2

REPORT INFORMATION
  Report Type: Spontaneous
  Country: US (occurrence: US)
  Receive Date: 20140502
  Receipt Date: 20140502
  Transmission Date: 20141212
  Serious: No
  Sender: FDA-Public Use
  Company Number: US-ASTRAZENECA-2013SE31660

PATIENT
  Age: 85 Year
  Sex: 0

DRUGS (4)
  1. PRILOSEC OTC [Suspect]
     Dosage: ONE PILL ONE TIME
     Route: 048
     Dates: end: 20130428
  2. SINGULAR [Concomitant]
  3. FLOVENT [Concomitant]
  4. SOMETHING WITH LOSARTIN POTASSIUM [Concomitant]

REACTIONS (6)
  - Oropharyngeal pain [Recovered/Resolved]
  - Condition aggravated [Unknown]
  - Dysgeusia [Unknown]
  - Hypersensitivity [Unknown]
  - Dyspepsia [Unknown]
  - Abdominal pain upper [Recovered/Resolved]
